FAERS Safety Report 6387311-8 (Version None)
Quarter: 2009Q3

REPORT INFORMATION
  Report Type: 
  Country: None (occurrence: None)
  Receive Date: 20090928
  Receipt Date: 20090912
  Transmission Date: 20100115
  Serious: Yes (Death)
  Sender: FDA-Public Use
  Company Number: 2009US003538

PATIENT
  Age: 45 Year
  Sex: Male

DRUGS (2)
  1. PROGRAF [Suspect]
     Indication: LUNG TRANSPLANT
  2. PREDNISONE (PREDNISONE) UNK TO UNK [Concomitant]

REACTIONS (8)
  - ASPERGILLOSIS [None]
  - KAPOSI'S SARCOMA [None]
  - LUNG CONSOLIDATION [None]
  - OFF LABEL USE [None]
  - PLEURAL EFFUSION [None]
  - PSEUDOMONAS INFECTION [None]
  - RASH [None]
  - STAPHYLOCOCCAL INFECTION [None]
